FAERS Safety Report 8605039 (Version 2)
Quarter: 2013Q2

REPORT INFORMATION
  Report Type: Spontaneous
  Country: US (occurrence: US)
  Receive Date: 20120608
  Receipt Date: 20130618
  Transmission Date: 20140414
  Serious: Yes (Hospitalization, Disabling)
  Sender: FDA-Public Use
  Company Number: US-ASTRAZENECA-2012SE35079

PATIENT
  Sex: Female
  Weight: 56.7 kg

DRUGS (10)
  1. NEXIUM [Suspect]
     Dosage: ONCE DAILY
     Route: 048
     Dates: start: 2006, end: 2007
  2. RANITIDINE [Concomitant]
     Indication: GASTRIC DISORDER
     Dates: start: 201102
  3. GABAPENTIN [Concomitant]
     Indication: MENTAL DISORDER
  4. AMLODIPINE [Concomitant]
     Indication: HYPERTENSION
  5. FLUOXETINE [Concomitant]
     Indication: ANTIDEPRESSANT THERAPY
  6. TRAZODONE [Concomitant]
     Indication: ANTIDEPRESSANT THERAPY
  7. MELOXICAM [Concomitant]
     Indication: ANTIINFLAMMATORY THERAPY
  8. CRESTOR [Concomitant]
     Indication: BLOOD CHOLESTEROL
  9. TIZANIDINE [Concomitant]
     Indication: MUSCLE RELAXANT THERAPY
  10. ASPIRIN [Concomitant]
     Indication: CARDIAC DISORDER

REACTIONS (14)
  - Back pain [Unknown]
  - Hypertension [Unknown]
  - Anxiety [Unknown]
  - Chest pain [Unknown]
  - Plantar fasciitis [Unknown]
  - Peripheral nerve lesion [Unknown]
  - Depression [Unknown]
  - Osteoporosis [Unknown]
  - Multiple fractures [Unknown]
  - Carpal tunnel syndrome [Unknown]
  - Arthritis [Unknown]
  - Hyperlipidaemia [Unknown]
  - Calcium deficiency [Unknown]
  - Scoliosis [Unknown]
